FAERS Safety Report 5475426-8 (Version None)
Quarter: 2007Q4

REPORT INFORMATION
  Report Type: 
  Country: None (occurrence: None)
  Receive Date: 20071003
  Receipt Date: 20070921
  Transmission Date: 20080405
  Serious: Yes (Hospitalization, Other)
  Sender: FDA-Public Use
  Company Number: HU-JNJFOC-20070705223

PATIENT
  Age: 54 Year
  Sex: Female
  Weight: 77 kg

DRUGS (9)
  1. REMICADE [Suspect]
     Route: 042
  2. REMICADE [Suspect]
     Indication: PSORIATIC ARTHROPATHY
     Route: 042
  3. METHOTREXATE [Suspect]
     Indication: PSORIATIC ARTHROPATHY
  4. METHYLPREDNISOLONE [Concomitant]
     Indication: PSORIATIC ARTHROPATHY
     Route: 048
  5. FOLIC ACID [Concomitant]
     Indication: PSORIATIC ARTHROPATHY
     Route: 048
  6. FUROSEMIDE [Concomitant]
     Indication: HYPERTONIA
     Route: 048
  7. ACETYL-SALLCYLLCUM ACID [Concomitant]
     Indication: ARTERIOSCLEROSIS CORONARY ARTERY
     Route: 048
  8. CEFUROXIME [Concomitant]
     Route: 042
  9. METAMIZOLE SODIUM [Concomitant]
     Route: 048

REACTIONS (1)
  - DISSEMINATED TUBERCULOSIS [None]
